FAERS Safety Report 7979232-1 (Version None)
Quarter: 2011Q4

REPORT INFORMATION
  Report Type: 
  Country: None (occurrence: None)
  Receive Date: 20111214
  Receipt Date: 20111205
  Transmission Date: 20120403
  Serious: Yes (Hospitalization, Other)
  Sender: FDA-Public Use
  Company Number: US-JNJFOC-20111202214

PATIENT
  Sex: Female
  Weight: 51.26 kg

DRUGS (6)
  1. DURAGESIC-100 [Suspect]
     Indication: BACK PAIN
     Route: 062
     Dates: start: 20010101
  2. DURAGESIC-100 [Suspect]
     Route: 062
  3. DURAGESIC-100 [Suspect]
     Route: 062
     Dates: start: 20110501
  4. DURAGESIC-100 [Suspect]
     Route: 062
     Dates: end: 20110501
  5. ZOLOFT [Suspect]
     Indication: DEPRESSION
     Route: 048
  6. SLEEPING PILL NOS [Concomitant]
     Indication: SLEEP DISORDER
     Route: 065

REACTIONS (16)
  - BODY HEIGHT DECREASED [None]
  - INTERVERTEBRAL DISC PROTRUSION [None]
  - SPINAL FUSION SURGERY [None]
  - THERAPY CESSATION [None]
  - MEMORY IMPAIRMENT [None]
  - APPLICATION SITE RASH [None]
  - ABNORMAL LOSS OF WEIGHT [None]
  - DRUG PRESCRIBING ERROR [None]
  - HYPOKINESIA [None]
  - PRODUCT QUALITY ISSUE [None]
  - NIGHT SWEATS [None]
  - BLOOD PRESSURE FLUCTUATION [None]
  - DEPRESSION [None]
  - WITHDRAWAL SYNDROME [None]
  - APPLICATION SITE PRURITUS [None]
  - WRONG TECHNIQUE IN DRUG USAGE PROCESS [None]
